FAERS Safety Report 5095018-2 (Version None)
Quarter: 2006Q3

REPORT INFORMATION
  Report Type: 
  Country: None (occurrence: None)
  Receive Date: 20060830
  Receipt Date: 20060714
  Transmission Date: 20061208
  Serious: Yes (Death, Hospitalization)
  Sender: FDA-Public Use
  Company Number: 2006072416

PATIENT
  Age: 63 Year
  Sex: Female
  Weight: 103.4201 kg

DRUGS (4)
  1. BEXTRA [Suspect]
     Indication: ARTHRITIS
     Dosage: 10 MG (10 MG, 1 IN 1 D)
     Dates: end: 20030301
  2. LIPITOR [Concomitant]
  3. NORVASC [Concomitant]
  4. CITRACAL + D (CALCIUMN CITRATE, ERGOCALCIFEROL) [Concomitant]

REACTIONS (6)
  - BRAIN DEATH [None]
  - FALL [None]
  - ISCHAEMIC STROKE [None]
  - PAIN IN EXTREMITY [None]
  - PULMONARY EMBOLISM [None]
  - SUBDURAL HAEMATOMA [None]
